FAERS Safety Report 6778948-2 (Version None)
Quarter: 2010Q2

REPORT INFORMATION
  Report Type: 
  Country: None (occurrence: None)
  Receive Date: 20100520
  Receipt Date: 20091109
  Transmission Date: 20101027
  Serious: Yes (Other)
  Sender: FDA-Public Use
  Company Number: 2008058739

PATIENT
  Age: 69 Year
  Sex: Female

DRUGS (10)
  1. PROVERA [Suspect]
     Indication: HORMONE REPLACEMENT THERAPY
     Dosage: ORAL
     Route: 048
     Dates: start: 19930101, end: 19970101
  2. PREMARIN [Suspect]
     Indication: HORMONE REPLACEMENT THERAPY
     Dates: start: 19930101, end: 19970101
  3. PREMPRO [Suspect]
     Indication: HORMONE REPLACEMENT THERAPY
     Dates: start: 19970101, end: 20020101
  4. MEDROL [Concomitant]
  5. PLAQUENIL [Concomitant]
  6. NAPROSYN [Concomitant]
  7. LEVOTHYROXINE SODIUM [Concomitant]
  8. LOTRISONE [Concomitant]
  9. ACTONEL [Concomitant]
  10. ETANERCEPT (ETANECEPT) [Concomitant]

REACTIONS (1)
  - BREAST CANCER FEMALE [None]
